FAERS Safety Report 5960540-0 (Version None)
Quarter: 2008Q4

REPORT INFORMATION
  Report Type: 
  Country: None (occurrence: None)
  Receive Date: 20081120
  Receipt Date: 20080605
  Transmission Date: 20090506
  Serious: No
  Sender: FDA-Public Use
  Company Number: US-ABBOTT-08P-163-0455473-00

PATIENT
  Sex: Female
  Weight: 49.94 kg

DRUGS (2)
  1. BIAXIN [Suspect]
     Indication: ALLERGIC SINUSITIS
     Dosage: ONLY TOOK 2 PILLS
     Route: 048
     Dates: start: 20030101, end: 20030101
  2. BIAXIN [Suspect]
     Indication: SINUSITIS

REACTIONS (3)
  - DYSPNOEA [None]
  - PRURITUS [None]
  - RASH [None]
